FAERS Safety Report 9489275 (Version 2)
Quarter: 2013Q3

REPORT INFORMATION
  Report Type: Spontaneous
  Country: SG (occurrence: SG)
  Receive Date: 20130829
  Receipt Date: 20130829
  Transmission Date: 20140515
  Serious: Yes (Death)
  Sender: FDA-Public Use
  Company Number: SG-PFIZER INC-2013237328

PATIENT
  Age: 25 Year
  Sex: Male

DRUGS (1)
  1. LINCOMYCIN HCL [Suspect]
     Indication: SKIN INFECTION
     Dosage: UNK
     Route: 030
     Dates: start: 201203, end: 201203

REACTIONS (1)
  - Anaphylactic reaction [Fatal]
